FAERS Safety Report 9066578 (Version 1)
Quarter: 2013Q1

REPORT INFORMATION
  Report Type: Spontaneous
  Country: US (occurrence: US)
  Receive Date: 20130214
  Receipt Date: 20130214
  Transmission Date: 20140127
  Serious: No
  Sender: FDA-Public Use
  Company Number: US-PFIZER INC-2013058105

PATIENT
  Age: 36 Year
  Sex: Male
  Weight: 93.42 kg

DRUGS (4)
  1. EFFEXOR [Suspect]
     Indication: DEPRESSION
     Dosage: 75MG DAILY FOR FOUR DAYS IN A WEEK AND 150MG DAILY FOR THE NEXT THREE DAYS
     Dates: start: 20130207
  2. EFFEXOR [Suspect]
     Indication: ANXIETY
  3. EFFEXOR [Suspect]
     Indication: ATTENTION DEFICIT/HYPERACTIVITY DISORDER
  4. TRAZODONE [Concomitant]
     Dosage: 150 MG, DAILY (AT NIGHT)

REACTIONS (1)
  - Insomnia [Not Recovered/Not Resolved]
